FAERS Safety Report 20027190 (Version 1)
Quarter: 2021Q4

REPORT INFORMATION
  Report Type: Spontaneous
  Country: NO (occurrence: NO)
  Receive Date: 20211103
  Receipt Date: 20211103
  Transmission Date: 20220303
  Serious: Yes (Hospitalization, Other)
  Sender: FDA-Public Use
  Company Number: None

PATIENT
  Age: 22 Year
  Sex: Female
  Weight: 72 kg

DRUGS (2)
  1. NEXPLANON [Suspect]
     Active Substance: ETONOGESTREL
     Indication: Contraception
     Dosage: IMPLANT
     Route: 058
     Dates: start: 201912, end: 202010
  2. VITAMIN D NOS [Concomitant]
     Active Substance: VITAMIN D NOS
     Dosage: UNK

REACTIONS (9)
  - Abdominal infection [Recovered/Resolved]
  - Laparoscopic surgery [Recovered/Resolved]
  - Middle insomnia [Unknown]
  - Hospitalisation [Recovered/Resolved]
  - Pelvic pain [Recovered/Resolved]
  - Ovarian cyst ruptured [Recovered/Resolved]
  - Medical device removal [Recovered/Resolved]
  - Cyst removal [Recovered/Resolved]
  - Ovarian cyst [Recovered/Resolved]

NARRATIVE: CASE EVENT DATE: 20200201
